FAERS Safety Report 7717570-8 (Version None)
Quarter: 2011Q3

REPORT INFORMATION
  Report Type: 
  Country: None (occurrence: None)
  Receive Date: 20110830
  Receipt Date: 20110818
  Transmission Date: 20111222
  Serious: No
  Sender: FDA-Public Use
  Company Number: US-B.I. PHARMACEUTICALS,INC./RIDGEFIELD-2011-BP-20313BP

PATIENT
  Sex: Female

DRUGS (3)
  1. ZOCOR [Concomitant]
     Indication: CARDIAC DISORDER
     Dosage: 40 MG
  2. PRADAXA [Suspect]
     Indication: ATRIAL FIBRILLATION
     Dosage: 300 MG
     Route: 048
     Dates: start: 20110101
  3. LOPRESSOR [Concomitant]
     Indication: CARDIAC DISORDER
     Dosage: 25 MG

REACTIONS (1)
  - FATIGUE [None]
